FAERS Safety Report 20736354 (Version 2)
Quarter: 2022Q2

REPORT INFORMATION
  Report Type: Spontaneous
  Country: US (occurrence: US)
  Receive Date: 20220421
  Receipt Date: 20220429
  Transmission Date: 20220720
  Serious: Yes (Death, Hospitalization, Other)
  Sender: FDA-Public Use
  Company Number: US-009507513-2204USA006375

PATIENT
  Sex: Female
  Weight: 113.38 kg

DRUGS (4)
  1. KEYTRUDA [Suspect]
     Active Substance: PEMBROLIZUMAB
     Indication: Soft tissue sarcoma
     Dosage: 200 MILLIGRAM, ONCE
     Route: 042
     Dates: start: 20220117, end: 20220207
  2. PRINIVIL [Concomitant]
     Active Substance: LISINOPRIL
  3. LASIX [Concomitant]
     Active Substance: FUROSEMIDE
     Dosage: 10 MG
  4. MICONAZOLE [Concomitant]
     Active Substance: MICONAZOLE

REACTIONS (3)
  - Immune-mediated myocarditis [Fatal]
  - Hepatic enzyme increased [Unknown]
  - Hospice care [Unknown]

NARRATIVE: CASE EVENT DATE: 20220101
